FAERS Safety Report 8059819-0 (Version None)
Quarter: 2012Q1

REPORT INFORMATION
  Report Type: 
  Country: None (occurrence: None)
  Receive Date: 20120120
  Receipt Date: 20120111
  Transmission Date: 20120608
  Serious: Yes (Other)
  Sender: FDA-Public Use
  Company Number: US-JNJFOC-20120104202

PATIENT
  Sex: Male
  Weight: 68.04 kg

DRUGS (12)
  1. PREDNISONE TAB [Concomitant]
     Indication: ARTHRITIS
     Route: 048
     Dates: start: 20090101
  2. BENADRYL [Concomitant]
     Indication: PREMEDICATION
     Route: 065
  3. AMBIEN [Concomitant]
     Indication: SLEEP DISORDER
     Route: 048
     Dates: start: 20110101
  4. XANAX [Concomitant]
     Indication: ANXIETY
     Route: 048
     Dates: start: 20100101
  5. STEROIDS NOS [Concomitant]
     Indication: PREMEDICATION
     Route: 065
  6. REMICADE [Suspect]
     Indication: RHEUMATOID ARTHRITIS
     Dosage: 4 1/2 VIALS WERE ADMINISTERED PER DOSE
     Route: 042
     Dates: start: 20100101, end: 20110901
  7. MELOXICAM [Concomitant]
     Indication: MUSCLE STRAIN
     Route: 048
     Dates: start: 20090101
  8. METHOTREXATE [Concomitant]
     Indication: ARTHRITIS
     Route: 065
     Dates: start: 20090101
  9. TRAZODONE HCL [Concomitant]
     Indication: SLEEP DISORDER
     Route: 048
     Dates: start: 20100101
  10. XANAX [Concomitant]
     Dosage: TAKEN AS NEEDED
     Route: 048
     Dates: start: 20100101
  11. FOLIC ACID [Concomitant]
     Indication: ARTHRITIS
     Route: 048
     Dates: start: 20090101
  12. PERCOCET [Concomitant]
     Indication: PAIN
     Route: 048
     Dates: start: 20090101

REACTIONS (13)
  - INFUSION RELATED REACTION [None]
  - DEPRESSION [None]
  - MUSCULOSKELETAL STIFFNESS [None]
  - PAIN [None]
  - ANXIETY [None]
  - HYPERSENSITIVITY [None]
  - MULTIPLE ALLERGIES [None]
  - PHARYNGEAL OEDEMA [None]
  - INCREASED UPPER AIRWAY SECRETION [None]
  - FEELING ABNORMAL [None]
  - FATIGUE [None]
  - DYSPNOEA [None]
  - DYSPEPSIA [None]
